FAERS Safety Report 18755914 (Version 1)
Quarter: 2021Q1

REPORT INFORMATION
  Report Type: Spontaneous
  Country: US (occurrence: US)
  Receive Date: 20210115
  Receipt Date: 20210115
  Transmission Date: 20210419
  Serious: Yes (Death)
  Sender: FDA-Public Use
  Company Number: None

PATIENT
  Age: 7 Year
  Sex: Male

DRUGS (9)
  1. VIGABATRIN 500 MG [Suspect]
     Active Substance: VIGABATRIN
     Indication: EPILEPSY
     Dosage: ?          OTHER ROUTE:GASTRIC TUBE?
     Dates: start: 20200610, end: 20210107
  2. PREVACID CAP [Concomitant]
  3. BANZEL TAB [Concomitant]
  4. CLONIDINE TAB [Concomitant]
  5. VITAMIN D TAB [Concomitant]
  6. D3 TABLET [Concomitant]
  7. GLYCOPYRROL TAB [Concomitant]
  8. CLOBAZAM. [Concomitant]
     Active Substance: CLOBAZAM
  9. LEVETIRACETA TAB [Concomitant]

REACTIONS (1)
  - Death [None]

NARRATIVE: CASE EVENT DATE: 20210107
